FAERS Safety Report 18341332 (Version 3)
Quarter: 2020Q4

REPORT INFORMATION
  Report Type: Spontaneous
  Country: AU (occurrence: AU)
  Receive Date: 20201003
  Receipt Date: 20201104
  Transmission Date: 20210113
  Serious: Yes (Other)
  Sender: FDA-Public Use
  Company Number: NVSC2020AU266158

PATIENT
  Sex: Female

DRUGS (2)
  1. METHOTREXATE. [Suspect]
     Active Substance: METHOTREXATE
     Indication: PSORIASIS
     Dosage: UNK
     Route: 065
  2. SODIBIC [Concomitant]
     Indication: PRODUCT USED FOR UNKNOWN INDICATION
     Route: 065

REACTIONS (9)
  - Pruritus [Unknown]
  - Erythema [Unknown]
  - Drug dependence [Unknown]
  - Rash [Recovering/Resolving]
  - Pain [Unknown]
  - Back pain [Recovering/Resolving]
  - Nephrolithiasis [Unknown]
  - Drug ineffective [Recovering/Resolving]
  - Medication error [Unknown]
